FAERS Safety Report 20110301 (Version 1)
Quarter: 2021Q4

REPORT INFORMATION
  Report Type: Spontaneous
  Country: US (occurrence: US)
  Receive Date: 20211124
  Receipt Date: 20211124
  Transmission Date: 20220303
  Serious: Yes (Hospitalization)
  Sender: FDA-Public Use
  Company Number: US-NOVOPROD-770891

PATIENT
  Age: 38 Year
  Sex: Male
  Weight: 72.85 kg

DRUGS (3)
  1. NOVOLOG [Suspect]
     Active Substance: INSULIN ASPART
     Indication: Type 1 diabetes mellitus
     Dosage: VARIABLE UNITS QAC
     Route: 058
     Dates: start: 20190826, end: 20190903
  2. INSULIN DEGLUDEC [Concomitant]
     Active Substance: INSULIN DEGLUDEC
     Indication: Product used for unknown indication
     Dosage: 44 IU, QD
     Route: 058
     Dates: start: 20190826, end: 20190902
  3. IBUPROFEN [Concomitant]
     Active Substance: IBUPROFEN
     Indication: Product used for unknown indication
     Dosage: 400 MG, SINGLE
     Route: 048
     Dates: start: 20190903, end: 20190903

REACTIONS (1)
  - Hypoglycaemia [Recovered/Resolved]
